FAERS Safety Report 15914569 (Version 1)
Quarter: 2019Q1

REPORT INFORMATION
  Report Type: Spontaneous
  Country: US (occurrence: US)
  Receive Date: 20190111
  Receipt Date: 20190111
  Transmission Date: 20190417
  Serious: No
  Sender: FDA-Public Use
  Company Number: None

PATIENT
  Age: 68 Year
  Sex: Female

DRUGS (1)
  1. LETAIRIS [Suspect]
     Active Substance: AMBRISENTAN
     Indication: PULMONARY ARTERIAL HYPERTENSION
     Route: 048
     Dates: start: 20181205, end: 20190101

REACTIONS (4)
  - Condition aggravated [None]
  - Dyspnoea [None]
  - Oedema peripheral [None]
  - Drug intolerance [None]

NARRATIVE: CASE EVENT DATE: 20190102
